FAERS Safety Report 14723240 (Version 1)
Quarter: 2018Q2

REPORT INFORMATION
  Report Type: Spontaneous
  Country: US (occurrence: US)
  Receive Date: 20180405
  Receipt Date: 20180405
  Transmission Date: 20180711
  Serious: Yes (Other)
  Sender: FDA-Public Use
  Company Number: US-TEVA-2018-US-877359

PATIENT
  Age: 56 Year
  Sex: Male

DRUGS (9)
  1. INSULIN GLARGINE [Concomitant]
     Active Substance: INSULIN GLARGINE
     Dosage: 36 UNITS DAILY; AT A SECOND FOLLOW-UP VISIT
     Route: 058
  2. SILDENAFIL. [Concomitant]
     Active Substance: SILDENAFIL
     Dosage: AS NEEDED
     Route: 048
  3. INSULIN GLARGINE [Concomitant]
     Active Substance: INSULIN GLARGINE
     Dosage: 28 UNITS AT BEDTIME, AT 1 MONTH FOLLOW-UP VISIT DOSE REMAINED 28 UNITS DAILY
     Route: 058
  4. INSULIN GLULISINE [Concomitant]
     Active Substance: INSULIN GLULISINE
     Dosage: 20 UNITS BEFORE EACH MEAL
     Route: 058
  5. PRAVASTATIN. [Concomitant]
     Active Substance: PRAVASTATIN
     Route: 048
  6. AMLODIPINE [Concomitant]
     Active Substance: AMLODIPINE BESYLATE
     Route: 048
  7. QUETIAPINE. [Suspect]
     Active Substance: QUETIAPINE
     Indication: INSOMNIA
     Dosage: AT BEDTIME
     Route: 065
  8. INSULIN GLULISINE [Concomitant]
     Active Substance: INSULIN GLULISINE
     Dosage: 25 UNITS BEFORE EACH MEAL, AT 1 MONTH FOLLOW-UP VISIT; AT A SECOND FOLLOW-UP VISIT THE NEXT MONTH...
     Route: 058
  9. BISOPROLOL/HYDROCHLOROTHIAZIDE [Concomitant]
     Active Substance: BISOPROLOL FUMARATE\HYDROCHLOROTHIAZIDE
     Dosage: 5/6.25 MG
     Route: 048

REACTIONS (2)
  - Type 2 diabetes mellitus [Recovering/Resolving]
  - Intentional product misuse [Unknown]
